FAERS Safety Report 18372388 (Version 1)
Quarter: 2020Q4

REPORT INFORMATION
  Report Type: Report from Study
  Country: IT (occurrence: IT)
  Receive Date: 20201012
  Receipt Date: 20201012
  Transmission Date: 20210114
  Serious: Yes (Other)
  Sender: FDA-Public Use
  Company Number: IT-MYLANLABS-2020M1085017

PATIENT
  Age: 79 Year
  Sex: Female

DRUGS (2)
  1. CILAZAPRIL [Concomitant]
     Active Substance: CILAZAPRIL ANHYDROUS
     Dosage: UNK
  2. GLIMEPIRIDE. [Suspect]
     Active Substance: GLIMEPIRIDE
     Indication: TYPE 2 DIABETES MELLITUS
     Dosage: 3 DOSAGE FORM, QD
     Route: 048
     Dates: start: 20190827, end: 20200827

REACTIONS (1)
  - Neuroglycopenia [Recovered/Resolved]

NARRATIVE: CASE EVENT DATE: 20200827
